FAERS Safety Report 11763038 (Version 1)
Quarter: 2015Q4

REPORT INFORMATION
  Report Type: Spontaneous
  Country: US (occurrence: US)
  Receive Date: 20151120
  Receipt Date: 20151120
  Transmission Date: 20160304
  Serious: No
  Sender: FDA-Public Use
  Company Number: US-ELI_LILLY_AND_COMPANY-US201301010510

PATIENT
  Age: 90 Year
  Sex: Female

DRUGS (4)
  1. FORTEO [Suspect]
     Active Substance: TERIPARATIDE
     Dosage: UNK, QOD
     Route: 065
     Dates: start: 20130128
  2. FORTEO [Suspect]
     Active Substance: TERIPARATIDE
     Indication: OSTEOPOROSIS
     Dosage: UNK, QD
     Route: 065
  3. FORTEO [Suspect]
     Active Substance: TERIPARATIDE
     Dosage: UNK, QD
     Route: 065
     Dates: start: 20130113, end: 20130116
  4. FORTEO [Suspect]
     Active Substance: TERIPARATIDE
     Dosage: UNK, QOD
     Route: 065

REACTIONS (9)
  - Malaise [Unknown]
  - Adverse event [Unknown]
  - Fatigue [Unknown]
  - Inappropriate schedule of drug administration [Not Recovered/Not Resolved]
  - Drug dose omission [Unknown]
  - Blood test abnormal [Unknown]
  - Drug intolerance [Unknown]
  - Weight decreased [Unknown]
  - Eating disorder [Recovering/Resolving]

NARRATIVE: CASE EVENT DATE: 20130128
